FAERS Safety Report 9857721 (Version 2)
Quarter: 2014Q1

REPORT INFORMATION
  Report Type: Spontaneous
  Country: US (occurrence: US)
  Receive Date: 20140131
  Receipt Date: 20140204
  Transmission Date: 20141002
  Serious: No
  Sender: FDA-Public Use
  Company Number: US-BIOGENIDEC-2014BI009419

PATIENT
  Age: 62 Year
  Sex: Female

DRUGS (1)
  1. AVONEX [Suspect]
     Indication: MULTIPLE SCLEROSIS
     Route: 030
     Dates: start: 20070928

REACTIONS (8)
  - Gastric disorder [Recovered/Resolved with Sequelae]
  - Influenza like illness [Recovered/Resolved]
  - Chills [Recovered/Resolved with Sequelae]
  - Headache [Recovered/Resolved]
  - Fatigue [Recovered/Resolved with Sequelae]
  - Pain [Recovered/Resolved]
  - Nausea [Recovered/Resolved]
  - Insomnia [Recovered/Resolved]
